FAERS Safety Report 6069403-6 (Version None)
Quarter: 2009Q1

REPORT INFORMATION
  Report Type: 
  Country: None (occurrence: None)
  Receive Date: 20090206
  Receipt Date: 20090125
  Transmission Date: 20090719
  Serious: Yes (Disabling, Other)
  Sender: FDA-Public Use
  Company Number: BR-PFIZER INC-2009162370

PATIENT

DRUGS (2)
  1. VIAGRA [Suspect]
     Indication: ERECTILE DYSFUNCTION
     Dosage: UNK
     Route: 048
     Dates: start: 20020101
  2. CAVERJECT [Suspect]
     Indication: ERECTILE DYSFUNCTION
     Dosage: UNK
     Dates: start: 20090101

REACTIONS (12)
  - ACCIDENT [None]
  - CERVICAL VERTEBRAL FRACTURE [None]
  - DRUG INEFFECTIVE [None]
  - EJACULATION FAILURE [None]
  - ERYTHEMA [None]
  - HEADACHE [None]
  - INTENTIONAL DRUG MISUSE [None]
  - LIBIDO DECREASED [None]
  - MUSCLE SPASMS [None]
  - NEUROGENIC BLADDER [None]
  - PAIN [None]
  - SENSORY LOSS [None]
